FAERS Safety Report 10254379 (Version 1)
Quarter: 2014Q2

REPORT INFORMATION
  Report Type: Spontaneous
  Country: US (occurrence: US)
  Receive Date: 20140624
  Receipt Date: 20140624
  Transmission Date: 20141212
  Serious: No
  Sender: FDA-Public Use
  Company Number: US-AMGEN INC.-USASP2014046650

PATIENT
  Age: 66 Year
  Sex: Female
  Weight: 97.05 kg

DRUGS (1)
  1. ENBREL [Suspect]
     Indication: PSORIASIS
     Dosage: 50 MG, QWK
     Route: 058
     Dates: start: 2003, end: 20140614

REACTIONS (7)
  - Lip pain [Unknown]
  - Eating disorder [Unknown]
  - Activities of daily living impaired [Unknown]
  - Pain [Unknown]
  - Sneezing [Unknown]
  - Rhinorrhoea [Unknown]
  - Hypersensitivity [Unknown]
